FAERS Safety Report 5627216-0 (Version None)
Quarter: 2008Q1

REPORT INFORMATION
  Report Type: 
  Country: None (occurrence: None)
  Receive Date: 20080128
  Receipt Date: 20071019
  Transmission Date: 20080703
  Serious: Yes (Life-Threatening, Other)
  Sender: FDA-Public Use
  Company Number: CLOF-10716

PATIENT
  Age: 13 Year
  Sex: Female
  Weight: 70 kg

DRUGS (9)
  1. CLOLAR [Suspect]
     Indication: ACUTE LYMPHOCYTIC LEUKAEMIA
     Dosage: 52 MG/M2, QD, INTRAVENOUS ; 40 MG/M2, QDX3, INTRAVENOUS
     Route: 042
     Dates: start: 20071017, end: 20071018
  2. CLOLAR [Suspect]
     Indication: ACUTE LYMPHOCYTIC LEUKAEMIA
     Dosage: 52 MG/M2, QD, INTRAVENOUS ; 40 MG/M2, QDX3, INTRAVENOUS
     Route: 042
     Dates: start: 20071019, end: 20071021
  3. ODANSETRON [Concomitant]
  4. DEXAMETHASONE TAB [Concomitant]
  5. APREPITANT (APREPITANT) [Concomitant]
  6. VANCOMYCIN [Concomitant]
  7. FAMOTIDINE [Concomitant]
  8. VALACYCLOVIR [Concomitant]
  9. CEFTAZIDIME (CEFTAZIDIMDE) [Concomitant]

REACTIONS (1)
  - SYSTEMIC INFLAMMATORY RESPONSE SYNDROME [None]
